FAERS Safety Report 8882632 (Version 2)
Quarter: 2012Q4

REPORT INFORMATION
  Report Type: 
  Country: NL (occurrence: NL)
  Receive Date: 20121102
  Receipt Date: 20121126
  Transmission Date: 20130627
  Serious: Yes (Death)
  Sender: FDA-Public Use
  Company Number: PHHY2012NL099215

PATIENT
  Sex: Female

DRUGS (3)
  1. ZOMETA [Suspect]
     Indication: BREAST CANCER METASTATIC
     Dosage: 4mg/100ml once per 28 days
     Dates: start: 20120423
  2. ZOMETA [Suspect]
     Dosage: 4mg/100ml once per 28 days
     Dates: start: 20120910
  3. ZOMETA [Suspect]
     Dosage: 4mg/100ml once per 28 days
     Dates: start: 20121010

REACTIONS (1)
  - Death [Fatal]
